FAERS Safety Report 22589892 (Version 1)
Quarter: 2023Q2

REPORT INFORMATION
  Report Type: Spontaneous
  Country: US (occurrence: None)
  Receive Date: 20230609
  Receipt Date: 20230609
  Transmission Date: 20230721
  Serious: Yes (Hospitalization, Other)
  Sender: FDA-Public Use
  Company Number: None

PATIENT
  Age: 44 Year
  Sex: Female
  Weight: 85.8 kg

DRUGS (7)
  1. FARXIGA [Suspect]
     Active Substance: DAPAGLIFLOZIN PROPANEDIOL
     Indication: Diabetes mellitus
     Dosage: FREQUENCY : DAILY;?
     Route: 048
     Dates: start: 20230321, end: 20230426
  2. TRADJENTA [Concomitant]
     Active Substance: LINAGLIPTIN
  3. BACTRIM DS [Concomitant]
     Active Substance: SULFAMETHOXAZOLE\TRIMETHOPRIM
  4. ZOCOR [Concomitant]
     Active Substance: SIMVASTATIN
  5. VITAMIN D [Concomitant]
     Active Substance: VITAMIN D NOS
  6. BUPROPION [Concomitant]
     Active Substance: BUPROPION
  7. TRESIBA [Concomitant]
     Active Substance: INSULIN DEGLUDEC

REACTIONS (7)
  - Abscess limb [None]
  - Asthenia [None]
  - Eschar [None]
  - Blister [None]
  - Gangrene [None]
  - Fournier^s gangrene [None]
  - Colostomy [None]

NARRATIVE: CASE EVENT DATE: 20230423
